FAERS Safety Report 5186385-X (Version None)
Quarter: 2006Q4

REPORT INFORMATION
  Report Type: 
  Country: None (occurrence: None)
  Receive Date: 20061213
  Receipt Date: 20061130
  Transmission Date: 20070319
  Serious: Yes (Hospitalization)
  Sender: FDA-Public Use
  Company Number: 2006143149

PATIENT
  Age: 29 Year
  Sex: Male

DRUGS (2)
  1. LYRICA [Suspect]
     Indication: TRIGEMINAL NEURALGIA
     Dosage: 3 IN 1 D, ORAL
     Route: 048
     Dates: start: 20061115, end: 20061117
  2. CARBAMAZEPINE [Concomitant]

REACTIONS (2)
  - DRUG HYPERSENSITIVITY [None]
  - VIRAL INFECTION [None]
